FAERS Safety Report 6631770 (Version 3)
Quarter: 2013Q1

REPORT INFORMATION
  Report Type: Spontaneous
  Country: FR (occurrence: FR)
  Receive Date: 20080502
  Receipt Date: 20130314
  Transmission Date: 20140127
  Serious: Yes (Death, Hospitalization, Congenital Anomaly, Other)
  Sender: FDA-Public Use
  Company Number: FR-PFIZER INC-2008037309

PATIENT
  Sex: Male

DRUGS (3)
  1. NEURONTIN [Suspect]
     Dosage: UNK
     Route: 064
     Dates: start: 200005
  2. DEPAKINE [Suspect]
     Dosage: UNK
     Route: 064
  3. FOLIC ACID [Concomitant]

REACTIONS (6)
  - Maternal exposure during pregnancy [Fatal]
  - Diaphragmatic hernia [Fatal]
  - Dysmorphism [Fatal]
  - Talipes [Fatal]
  - Congenital anomaly [Fatal]
  - Pulmonary hypoplasia [Fatal]
